APPROVED DRUG PRODUCT: METHYLDOPA AND HYDROCHLOROTHIAZIDE
Active Ingredient: HYDROCHLOROTHIAZIDE; METHYLDOPA
Strength: 15MG;250MG
Dosage Form/Route: TABLET;ORAL
Application: A070853 | Product #001
Applicant: PUREPAC PHARMACEUTICAL CO
Approved: Oct 8, 1986 | RLD: No | RS: No | Type: DISCN